FAERS Safety Report 6274875-8 (Version None)
Quarter: 2009Q3

REPORT INFORMATION
  Report Type: 
  Country: None (occurrence: None)
  Receive Date: 20090721
  Receipt Date: 20080111
  Transmission Date: 20100115
  Serious: Yes (Other)
  Sender: FDA-Public Use
  Company Number: US-ASTRAZENECA-2007UW14865

PATIENT
  Age: 14079 Day
  Sex: Female
  Weight: 66.2 kg

DRUGS (25)
  1. SEROQUEL [Suspect]
     Indication: SLEEP DISORDER
     Route: 048
     Dates: start: 20040101, end: 20060601
  2. SEROQUEL [Suspect]
     Dosage: 100-200 MG
     Route: 048
     Dates: start: 20040509
  3. ABILIFY [Concomitant]
  4. PHENERGAN [Concomitant]
  5. CYMBALTA [Concomitant]
  6. ZELNORM [Concomitant]
  7. TRILEPTAL [Concomitant]
  8. DIOVAN [Concomitant]
  9. ALPRAZOLAM [Concomitant]
  10. HYDROXYZINE HYDROCHLORIDE [Concomitant]
  11. PROPOXYPHENE HCL CAP [Concomitant]
  12. LISINOPRIL [Concomitant]
  13. ALBUTEROL [Concomitant]
  14. NEURONTIN [Concomitant]
  15. IBUPROFEN [Concomitant]
  16. REGLAN [Concomitant]
  17. HALDOL [Concomitant]
  18. NUBAIN [Concomitant]
  19. DOCUSATE SODIUM [Concomitant]
  20. NITROGLYCERIN [Concomitant]
  21. FUROSEMIDE [Concomitant]
  22. TRIMETHOPRIM + SULFAMETHOXAZOLE [Concomitant]
  23. ATENOLOL [Concomitant]
  24. RISPERIDONE [Concomitant]
  25. COMPAZINE [Concomitant]

REACTIONS (1)
  - PANCREATITIS CHRONIC [None]
